FAERS Safety Report 15020022 (Version 3)
Quarter: 2018Q3

REPORT INFORMATION
  Report Type: Report from Study
  Country: ES (occurrence: ES)
  Receive Date: 20180618
  Receipt Date: 20180831
  Transmission Date: 20181010
  Serious: Yes (Hospitalization, Other)
  Sender: FDA-Public Use
  Company Number: ES-TEVA-2018-ES-907370

PATIENT
  Age: 66 Year
  Sex: Female

DRUGS (9)
  1. BEVACIZUMAB. [Suspect]
     Active Substance: BEVACIZUMAB
     Route: 042
     Dates: start: 20160830
  2. BEVACIZUMAB. [Suspect]
     Active Substance: BEVACIZUMAB
     Indication: BREAST CANCER
     Dosage: STRENGTH: 25 MG/ML
     Route: 042
     Dates: start: 20160415
  3. PACLITAXEL. [Suspect]
     Active Substance: PACLITAXEL
     Indication: BREAST CANCER
     Dosage: STRENGTH: 6 MG/ML
     Route: 042
     Dates: start: 20160415
  4. PREDNISONA [Concomitant]
     Active Substance: PREDNISONE
     Dosage: 30 MILLIGRAM DAILY;
     Route: 048
     Dates: start: 20160512, end: 20160523
  5. PREDNISONA [Concomitant]
     Active Substance: PREDNISONE
     Route: 048
     Dates: start: 20160524, end: 20160528
  6. LEVOTIROXINA [Concomitant]
     Indication: HYPOTHYROIDISM
     Dosage: STRENGTH: 6 MG/ML
     Route: 048
  7. LEVOFLOXACINO [Concomitant]
     Active Substance: LEVOFLOXACIN
     Dosage: 500 MILLIGRAM DAILY;
     Route: 065
     Dates: start: 20160512, end: 20160516
  8. PACLITAXEL. [Suspect]
     Active Substance: PACLITAXEL
     Route: 042
     Dates: start: 20161024
  9. PREDNISONA [Concomitant]
     Active Substance: PREDNISONE
     Route: 048
     Dates: start: 20160529, end: 20160602

REACTIONS (10)
  - Paraesthesia [Recovered/Resolved]
  - Fatigue [Recovered/Resolved]
  - Stomatitis [Recovered/Resolved]
  - Nail toxicity [Recovering/Resolving]
  - Nail toxicity [Recovered/Resolved]
  - Infusion related reaction [Recovered/Resolved]
  - Neutropenia [Recovered/Resolved]
  - Epistaxis [Recovered/Resolved]
  - Dyspnoea [Recovered/Resolved]
  - Neutropenia [Recovered/Resolved]

NARRATIVE: CASE EVENT DATE: 20160512
